FAERS Safety Report 6711134-0 (Version None)
Quarter: 2010Q2

REPORT INFORMATION
  Report Type: 
  Country: None (occurrence: None)
  Receive Date: 20100504
  Receipt Date: 20100504
  Transmission Date: 20101027
  Serious: Yes (Hospitalization)
  Sender: FDA-Public Use
  Company Number: None

PATIENT
  Age: 73 Year
  Sex: Male
  Weight: 86.1834 kg

DRUGS (2)
  1. PROMETHAZINE [Suspect]
     Indication: DIZZINESS
     Dosage: 25 MG X1 IV
     Route: 042
     Dates: start: 20100419
  2. PROMETHAZINE [Suspect]
     Indication: VERTIGO
     Dosage: 25 MG X1 IV
     Route: 042
     Dates: start: 20100419

REACTIONS (9)
  - AGITATION [None]
  - AKATHISIA [None]
  - ANXIETY [None]
  - CONFUSIONAL STATE [None]
  - DYSTONIA [None]
  - MOVEMENT DISORDER [None]
  - RESTLESSNESS [None]
  - SPEECH DISORDER [None]
  - TREMOR [None]
